FAERS Safety Report 13947597 (Version 2)
Quarter: 2017Q3

REPORT INFORMATION
  Report Type: Spontaneous
  Country: US (occurrence: US)
  Receive Date: 20170908
  Receipt Date: 20170912
  Transmission Date: 20171128
  Serious: Yes (Other)
  Sender: FDA-Public Use
  Company Number: US-BEH-2017083390

PATIENT
  Age: 57 Year
  Sex: Female

DRUGS (4)
  1. ALBUMIN HUMAN (INN) [Suspect]
     Active Substance: ALBUMIN HUMAN
     Indication: FLUID REPLACEMENT
     Dosage: UNK, QOW
     Route: 065
  2. GAMMAGARD [Concomitant]
     Active Substance: HUMAN IMMUNOGLOBULIN G
     Indication: PRIMARY IMMUNODEFICIENCY SYNDROME
     Route: 042
  3. MIDODRINE [Suspect]
     Active Substance: MIDODRINE
     Indication: POSTURAL ORTHOSTATIC TACHYCARDIA SYNDROME
     Route: 065
  4. IMMUNOGLOBULIN HUMAN NORMAL [Suspect]
     Active Substance: HUMAN IMMUNOGLOBULIN G
     Indication: PRIMARY IMMUNODEFICIENCY SYNDROME
     Dosage: 35 G, QMT
     Route: 058

REACTIONS (2)
  - Palpitations [Recovered/Resolved]
  - Chest pain [Recovered/Resolved]
